FAERS Safety Report 15120110 (Version 1)
Quarter: 2018Q3

REPORT INFORMATION
  Report Type: Spontaneous
  Country: JP (occurrence: JP)
  Receive Date: 20180709
  Receipt Date: 20180709
  Transmission Date: 20181010
  Serious: Yes (Other)
  Sender: FDA-Public Use
  Company Number: JP-ASTELLAS-2018JP012895

PATIENT
  Age: 13 Year
  Sex: Male

DRUGS (64)
  1. CYTARABINE. [Concomitant]
     Active Substance: CYTARABINE
     Dosage: 3 G/M^2, EVERY 12 HOURS
     Route: 065
  2. MITOXANTRONE [Concomitant]
     Active Substance: MITOXANTRONE HYDROCHLORIDE
     Indication: CHEMOTHERAPY
     Route: 065
  3. L?ASPARAGINASE [Concomitant]
     Active Substance: ASPARAGINASE
     Indication: CHEMOTHERAPY
     Dosage: 10000 U/M^2 X 5 TIMES PER CYCLE
     Route: 065
  4. L?ASPARAGINASE [Concomitant]
     Active Substance: ASPARAGINASE
     Dosage: 10000 U/M^2 X 5 TIMES PER CYCLE
     Route: 065
  5. L?ASPARAGINASE [Concomitant]
     Active Substance: ASPARAGINASE
     Dosage: 10000 U/M^2 X 5 TIMES PER CYCLE
     Route: 065
  6. CYTARABINE. [Concomitant]
     Active Substance: CYTARABINE
     Route: 037
  7. HYDROCORTISONE. [Concomitant]
     Active Substance: HYDROCORTISONE
     Route: 037
  8. HYDROCORTISONE. [Concomitant]
     Active Substance: HYDROCORTISONE
     Route: 037
  9. ETOPOSIDE. [Concomitant]
     Active Substance: ETOPOSIDE
     Route: 065
  10. METHOTREXATE. [Concomitant]
     Active Substance: METHOTREXATE
     Indication: PROPHYLAXIS AGAINST GRAFT VERSUS HOST DISEASE
     Route: 065
  11. CYTARABINE. [Concomitant]
     Active Substance: CYTARABINE
     Dosage: 2 G/M^2, EVERY 12 HOURS
     Route: 065
  12. CYTARABINE. [Concomitant]
     Active Substance: CYTARABINE
     Route: 065
  13. L?ASPARAGINASE [Concomitant]
     Active Substance: ASPARAGINASE
     Indication: CHEMOTHERAPY
     Dosage: 10000 U/M^2 X 5 TIMES PER CYCLE
     Route: 065
  14. METHOTREXATE. [Concomitant]
     Active Substance: METHOTREXATE
     Indication: CHEMOTHERAPY
     Route: 037
  15. HYDROCORTISONE. [Concomitant]
     Active Substance: HYDROCORTISONE
     Route: 037
  16. METHOTREXATE. [Concomitant]
     Active Substance: METHOTREXATE
     Route: 065
  17. CYTARABINE. [Concomitant]
     Active Substance: CYTARABINE
     Dosage: 2 G/M^2, EVERY 12 HOURS
     Route: 065
  18. MITOXANTRONE [Concomitant]
     Active Substance: MITOXANTRONE HYDROCHLORIDE
     Route: 065
  19. METHOTREXATE. [Concomitant]
     Active Substance: METHOTREXATE
     Route: 037
  20. METHOTREXATE. [Concomitant]
     Active Substance: METHOTREXATE
     Route: 037
  21. CYTARABINE. [Concomitant]
     Active Substance: CYTARABINE
     Route: 037
  22. CYTARABINE. [Concomitant]
     Active Substance: CYTARABINE
     Route: 037
  23. HYDROCORTISONE. [Concomitant]
     Active Substance: HYDROCORTISONE
     Indication: CHEMOTHERAPY
     Route: 037
  24. HYDROCORTISONE. [Concomitant]
     Active Substance: HYDROCORTISONE
     Route: 037
  25. IDARUBICIN [Concomitant]
     Active Substance: IDARUBICIN
     Indication: CHEMOTHERAPY
     Route: 065
  26. CYTARABINE. [Concomitant]
     Active Substance: CYTARABINE
     Dosage: 2 G/M^2, EVERY 12 HOURS
     Route: 065
  27. METHOTREXATE. [Concomitant]
     Active Substance: METHOTREXATE
     Route: 037
  28. CYTARABINE. [Concomitant]
     Active Substance: CYTARABINE
     Indication: CHEMOTHERAPY
     Route: 037
  29. CYTARABINE. [Concomitant]
     Active Substance: CYTARABINE
     Route: 037
  30. CYTARABINE. [Concomitant]
     Active Substance: CYTARABINE
     Route: 037
  31. HYDROCORTISONE. [Concomitant]
     Active Substance: HYDROCORTISONE
     Route: 037
  32. IDARUBICIN [Concomitant]
     Active Substance: IDARUBICIN
     Indication: CHEMOTHERAPY
     Route: 065
  33. CYTARABINE. [Concomitant]
     Active Substance: CYTARABINE
     Indication: CHEMOTHERAPY
     Route: 065
  34. CYTARABINE. [Concomitant]
     Active Substance: CYTARABINE
     Dosage: 2 G/M^2, EVERY 12 HOURS
     Route: 065
  35. MITOXANTRONE [Concomitant]
     Active Substance: MITOXANTRONE HYDROCHLORIDE
     Indication: CHEMOTHERAPY
     Route: 065
  36. L?ASPARAGINASE [Concomitant]
     Active Substance: ASPARAGINASE
     Dosage: 10000 U/M^2 X 5 TIMES PER CYCLE
     Route: 065
  37. L?ASPARAGINASE [Concomitant]
     Active Substance: ASPARAGINASE
     Dosage: 10000 U/M^2 X 5 TIMES PER CYCLE
     Route: 065
  38. METHOTREXATE. [Concomitant]
     Active Substance: METHOTREXATE
     Route: 037
  39. CYTARABINE. [Concomitant]
     Active Substance: CYTARABINE
     Route: 037
  40. HYDROCORTISONE. [Concomitant]
     Active Substance: HYDROCORTISONE
     Route: 037
  41. IDARUBICIN [Concomitant]
     Active Substance: IDARUBICIN
     Route: 065
  42. CYTARABINE. [Concomitant]
     Active Substance: CYTARABINE
     Dosage: 3 G/M^2, EVERY 12 HOURS
     Route: 065
  43. METHOTREXATE. [Concomitant]
     Active Substance: METHOTREXATE
     Route: 037
  44. METHOTREXATE. [Concomitant]
     Active Substance: METHOTREXATE
     Route: 037
  45. METHOTREXATE. [Concomitant]
     Active Substance: METHOTREXATE
     Route: 037
  46. HYDROCORTISONE. [Concomitant]
     Active Substance: HYDROCORTISONE
     Route: 037
  47. HYDROCORTISONE. [Concomitant]
     Active Substance: HYDROCORTISONE
     Route: 037
  48. ETOPOSIDE. [Concomitant]
     Active Substance: ETOPOSIDE
     Indication: CHEMOTHERAPY
     Route: 065
  49. ETOPOSIDE. [Concomitant]
     Active Substance: ETOPOSIDE
     Route: 065
  50. MELPHALAN. [Concomitant]
     Active Substance: MELPHALAN
     Indication: BONE MARROW CONDITIONING REGIMEN
     Route: 065
  51. CYTARABINE. [Concomitant]
     Active Substance: CYTARABINE
     Indication: CHEMOTHERAPY
     Dosage: 3 G/M^2, EVERY 12 HOURS
     Route: 065
  52. METHOTREXATE. [Concomitant]
     Active Substance: METHOTREXATE
     Route: 037
  53. METHOTREXATE. [Concomitant]
     Active Substance: METHOTREXATE
     Route: 037
  54. CYTARABINE. [Concomitant]
     Active Substance: CYTARABINE
     Route: 037
  55. CYTARABINE. [Concomitant]
     Active Substance: CYTARABINE
     Route: 037
  56. FLUDARABINE [Concomitant]
     Active Substance: FLUDARABINE PHOSPHATE
     Route: 065
  57. TACROLIMUS. [Suspect]
     Active Substance: TACROLIMUS
     Indication: PROPHYLAXIS AGAINST GRAFT VERSUS HOST DISEASE
     Dosage: 0.02 MG/KG, ONCE DAILY
     Route: 065
  58. CYTARABINE. [Concomitant]
     Active Substance: CYTARABINE
     Dosage: 2 G/M^2, EVERY 12 HOURS
     Route: 065
  59. MITOXANTRONE [Concomitant]
     Active Substance: MITOXANTRONE HYDROCHLORIDE
     Route: 065
  60. L?ASPARAGINASE [Concomitant]
     Active Substance: ASPARAGINASE
     Dosage: 10000 U/M^2 X 5 TIMES PER CYCLE
     Route: 065
  61. L?ASPARAGINASE [Concomitant]
     Active Substance: ASPARAGINASE
     Dosage: 10000 U/M^2 X 5 TIMES PER CYCLE
     Route: 065
  62. CYTARABINE. [Concomitant]
     Active Substance: CYTARABINE
     Route: 037
  63. HYDROCORTISONE. [Concomitant]
     Active Substance: HYDROCORTISONE
     Route: 037
  64. FLUDARABINE [Concomitant]
     Active Substance: FLUDARABINE PHOSPHATE
     Indication: CHEMOTHERAPY
     Route: 065

REACTIONS (1)
  - Graft versus host disease [Unknown]
